FAERS Safety Report 23969916 (Version 1)
Quarter: 2024Q2

REPORT INFORMATION
  Report Type: Spontaneous
  Country: FR (occurrence: FR)
  Receive Date: 20240613
  Receipt Date: 20240613
  Transmission Date: 20240716
  Serious: Yes (Hospitalization, Other)
  Sender: FDA-Public Use
  Company Number: None

PATIENT
  Age: 68 Year
  Sex: Male
  Weight: 80 kg

DRUGS (7)
  1. NIVOLUMAB [Suspect]
     Active Substance: NIVOLUMAB
     Indication: Bronchial carcinoma
     Dosage: C1
     Route: 042
     Dates: start: 20231222, end: 20231222
  2. NIVOLUMAB [Suspect]
     Active Substance: NIVOLUMAB
     Dosage: C2
     Route: 042
     Dates: start: 20240112, end: 20240112
  3. NIVOLUMAB [Suspect]
     Active Substance: NIVOLUMAB
     Dosage: C4
     Route: 042
     Dates: start: 20240202, end: 20240202
  4. NIVOLUMAB [Suspect]
     Active Substance: NIVOLUMAB
     Dosage: C5
     Route: 042
     Dates: start: 20240216, end: 20240216
  5. NIVOLUMAB [Suspect]
     Active Substance: NIVOLUMAB
     Dosage: C6
     Route: 042
     Dates: start: 20240301, end: 20240301
  6. NIVOLUMAB [Suspect]
     Active Substance: NIVOLUMAB
     Dosage: C7
     Route: 042
     Dates: start: 20240315, end: 20240315
  7. KEPPRA [Suspect]
     Active Substance: LEVETIRACETAM
     Indication: Tonic clonic movements
     Route: 048
     Dates: start: 20240210

REACTIONS (2)
  - Thrombocytopenia [Not Recovered/Not Resolved]
  - Haemolytic anaemia [Recovering/Resolving]

NARRATIVE: CASE EVENT DATE: 20240213
